FAERS Safety Report 4365980-1 (Version None)
Quarter: 2004Q2

REPORT INFORMATION
  Report Type: 
  Country: None (occurrence: None)
  Receive Date: 20040526
  Receipt Date: 20040517
  Transmission Date: 20050107
  Serious: Yes (Hospitalization)
  Sender: FDA-Public Use
  Company Number: 200411984FR

PATIENT
  Age: 68 Year
  Sex: Male
  Weight: 107 kg

DRUGS (10)
  1. KETEK [Suspect]
     Indication: BRONCHITIS
     Route: 048
     Dates: start: 20040406, end: 20040412
  2. CORVASAL [Concomitant]
     Route: 048
  3. PREVISCAN [Concomitant]
     Route: 048
     Dates: end: 20040416
  4. LASIX [Concomitant]
     Route: 048
  5. ISOPTIN [Concomitant]
     Route: 048
  6. ADANCOR [Concomitant]
     Route: 048
  7. DEROXAT [Concomitant]
     Route: 048
  8. OXEOL [Concomitant]
     Route: 048
  9. LEXOMIL [Concomitant]
  10. IMOVANE [Concomitant]
     Route: 048

REACTIONS (3)
  - EPISTAXIS [None]
  - HAEMATOMA [None]
  - IDIOPATHIC THROMBOCYTOPENIC PURPURA [None]
